FAERS Safety Report 6808450-0 (Version None)
Quarter: 2010Q2

REPORT INFORMATION
  Report Type: 
  Country: None (occurrence: None)
  Receive Date: 20100629
  Receipt Date: 20090701
  Transmission Date: 20101027
  Serious: No
  Sender: FDA-Public Use
  Company Number: US-PFIZER INC-2009235692

PATIENT
  Age: 71 Year
  Sex: Male
  Weight: 93.893 kg

DRUGS (7)
  1. TIKOSYN [Suspect]
     Indication: ARRHYTHMIA
     Dosage: 1000 UG, 2X/DAY
     Route: 048
     Dates: start: 20090401
  2. VIAGRA [Interacting]
     Indication: ERECTILE DYSFUNCTION
     Dosage: 50 MG, EVERY 3 WEEKS
     Route: 048
  3. HYDROCHLOROTHIAZIDE [Concomitant]
     Dosage: UNK
     Route: 048
  4. CADUET [Concomitant]
     Dosage: UNK
     Route: 048
     Dates: start: 20090301
  5. WARFARIN [Concomitant]
     Dosage: UNK
     Route: 048
  6. POTASSIUM CHLORIDE [Concomitant]
     Dosage: UNK
     Route: 048
  7. LISINOPRIL [Concomitant]
     Dosage: UNK
     Route: 048

REACTIONS (2)
  - DRUG INEFFECTIVE [None]
  - DRUG INTERACTION [None]
